FAERS Safety Report 7328418-8 (Version None)
Quarter: 2011Q1

REPORT INFORMATION
  Report Type: 
  Country: None (occurrence: None)
  Receive Date: 20110224
  Receipt Date: 20110224
  Transmission Date: 20110831
  Serious: Yes (Other)
  Sender: FDA-Public Use
  Company Number: None

PATIENT
  Age: 69 Year
  Sex: Male
  Weight: 119 kg

DRUGS (2)
  1. BIVALIRUDIN [Suspect]
     Dosage: IV
     Route: 042
     Dates: start: 20110211, end: 20110211
  2. EPTIFIBATIDE [Suspect]
     Dosage: IV
     Route: 042
     Dates: start: 20110211, end: 20110212

REACTIONS (2)
  - EPISTAXIS [None]
  - HAEMATURIA [None]
